FAERS Safety Report 6346936-6 (Version None)
Quarter: 2009Q3

REPORT INFORMATION
  Report Type: 
  Country: None (occurrence: None)
  Receive Date: 20090910
  Receipt Date: 20090902
  Transmission Date: 20100115
  Serious: Yes (Death)
  Sender: FDA-Public Use
  Company Number: US-CELGENEUS-163-20785-09090256

PATIENT
  Sex: Male

DRUGS (5)
  1. THALOMID [Suspect]
     Indication: MULTIPLE MYELOMA
     Route: 048
     Dates: start: 20090701
  2. THALOMID [Suspect]
     Dosage: 50MG, 100MG
     Route: 048
     Dates: start: 20090511
  3. THALOMID [Suspect]
     Dosage: 200MG, 100MG, 50MG
     Route: 048
     Dates: start: 20060301, end: 20060901
  4. REVLIMID [Suspect]
     Indication: MULTIPLE MYELOMA
     Route: 048
     Dates: start: 20071201, end: 20090301
  5. REVLIMID [Suspect]
     Route: 048
     Dates: start: 20070901

REACTIONS (2)
  - FAILURE TO THRIVE [None]
  - MULTIPLE MYELOMA [None]
